FAERS Safety Report 12168451 (Version 1)
Quarter: 2016Q1

REPORT INFORMATION
  Report Type: Spontaneous
  Country: AT (occurrence: AT)
  Receive Date: 20160310
  Receipt Date: 20160310
  Transmission Date: 20160526
  Serious: Yes (Hospitalization, Other)
  Sender: FDA-Public Use
  Company Number: AT-BIOGEN-2010BI041689

PATIENT
  Age: 37 Year
  Sex: Female

DRUGS (5)
  1. TRITTICO [Concomitant]
     Active Substance: TRAZODONE HYDROCHLORIDE
     Indication: ADJUSTMENT DISORDER WITH DEPRESSED MOOD
     Dates: start: 201009
  2. MIRTABENE [Concomitant]
     Active Substance: MIRTAZAPINE
     Indication: ADJUSTMENT DISORDER WITH DEPRESSED MOOD
     Dates: start: 200909
  3. TYSABRI [Suspect]
     Active Substance: NATALIZUMAB
     Indication: MULTIPLE SCLEROSIS
     Dosage: INFUSED OVER ONE HOUR
     Route: 042
     Dates: start: 200705, end: 20101101
  4. FLUCTINE [Concomitant]
     Active Substance: FLUOXETINE HYDROCHLORIDE
     Indication: ADJUSTMENT DISORDER WITH DEPRESSED MOOD
     Dates: start: 200909
  5. WELLBUTRIN [Concomitant]
     Active Substance: BUPROPION HYDROCHLORIDE
     Indication: ADJUSTMENT DISORDER WITH DEPRESSED MOOD
     Dates: start: 201009

REACTIONS (7)
  - Visual impairment [Unknown]
  - Immune reconstitution inflammatory syndrome [Not Recovered/Not Resolved]
  - Hemianopia homonymous [Unknown]
  - Progressive multifocal leukoencephalopathy [Recovered/Resolved]
  - Multiple sclerosis [Unknown]
  - Serotonin syndrome [Unknown]
  - Device related sepsis [Recovered/Resolved]

NARRATIVE: CASE EVENT DATE: 201007
